FAERS Safety Report 5118511-2 (Version None)
Quarter: 2006Q4

REPORT INFORMATION
  Report Type: 
  Country: None (occurrence: None)
  Receive Date: 20061002
  Receipt Date: 20040414
  Transmission Date: 20070319
  Serious: Yes (Disabling, Other)
  Sender: FDA-Public Use
  Company Number: PHBS2004JP05112

PATIENT
  Age: 59 Year
  Sex: Female

DRUGS (22)
  1. PREDONINE [Suspect]
     Indication: INTERSTITIAL LUNG DISEASE
     Dosage: UNK, UNK
     Route: 048
     Dates: start: 20030823
  2. PREDONINE [Suspect]
     Dosage: 60 MG/D
     Route: 048
     Dates: start: 20030912, end: 20031019
  3. PREDONINE [Suspect]
     Dosage: 55 MG/D
     Route: 048
     Dates: start: 20031020, end: 20031202
  4. PREDONINE [Suspect]
     Dosage: 50 MG/D
     Route: 048
     Dates: start: 20031203, end: 20031209
  5. PREDONINE [Suspect]
     Dosage: 45 MG/D
     Route: 048
     Dates: start: 20031210, end: 20031216
  6. PREDONINE [Suspect]
     Dosage: 40 MG/D
     Route: 048
     Dates: start: 20031217, end: 20031223
  7. PREDONINE [Suspect]
     Dosage: 35 MG/D
     Route: 048
     Dates: start: 20031224, end: 20040106
  8. PREDONINE [Suspect]
     Dosage: 30 MG/D
     Route: 048
     Dates: start: 20040107
  9. NEORAL [Suspect]
     Indication: INTERSTITIAL LUNG DISEASE
     Dosage: 50 MG/D
     Route: 048
     Dates: start: 20031020, end: 20031026
  10. NEORAL [Suspect]
     Dosage: 100 MG/D
     Route: 048
     Dates: start: 20031027, end: 20031124
  11. NEORAL [Suspect]
     Dosage: 75 MG/D
     Route: 048
     Dates: start: 20031125, end: 20031207
  12. NEORAL [Suspect]
     Dosage: 95 MG/D
     Route: 048
     Dates: start: 20031208, end: 20031223
  13. NEORAL [Suspect]
     Dosage: 50 MG/D
     Route: 048
     Dates: start: 20031224
  14. TOFRANIL [Concomitant]
     Dosage: 10 MG/D
     Route: 048
     Dates: start: 20031117
  15. EVAMYL [Concomitant]
     Dosage: 1 MG/D
     Route: 048
     Dates: start: 20031113, end: 20031203
  16. DEPAS [Concomitant]
     Dosage: 1 MG/D
     Route: 048
     Dates: start: 20031113, end: 20031116
  17. LEXOTAN [Concomitant]
     Dosage: 3 MG/D
     Route: 048
     Dates: start: 20031117, end: 20031224
  18. SOLU-MEDROL [Concomitant]
     Dosage: 1 G/D
     Route: 042
     Dates: start: 20030902
  19. BONALON [Concomitant]
     Dosage: 5 MG/D
     Route: 048
     Dates: start: 20031008
  20. LORAZEPAM [Concomitant]
     Dosage: 1.5 MG/D
     Route: 048
     Dates: start: 20031113, end: 20031116
  21. BACTRIM [Concomitant]
     Dosage: 1 G/D
     Route: 048
     Dates: start: 20031119, end: 20040127
  22. INSULIN [Concomitant]
     Dosage: 12 IU/D
     Route: 058
     Dates: start: 20030912, end: 20040219

REACTIONS (14)
  - BLINDNESS [None]
  - BLOOD PRESSURE INCREASED [None]
  - CD4/CD8 RATIO INCREASED [None]
  - DEPRESSION [None]
  - DIABETES MELLITUS [None]
  - DRUG INEFFECTIVE [None]
  - DRUG INTERACTION [None]
  - HERPES SIMPLEX [None]
  - HERPES ZOSTER [None]
  - NECROTISING RETINITIS [None]
  - NEURALGIA [None]
  - PO2 DECREASED [None]
  - REACTIVE PSYCHOSIS [None]
  - RETINITIS VIRAL [None]
